FAERS Safety Report 16239259 (Version 2)
Quarter: 2019Q2

REPORT INFORMATION
  Report Type: Report from Study
  Country: US (occurrence: US)
  Receive Date: 20190425
  Receipt Date: 20190502
  Transmission Date: 20190711
  Serious: Yes (Other)
  Sender: FDA-Public Use
  Company Number: US-BIOVITRUM-2019US0807

PATIENT
  Age: 12 Year
  Sex: Male
  Weight: 18 kg

DRUGS (8)
  1. VANCOMYCIN [Concomitant]
     Active Substance: VANCOMYCIN
  2. CODEINE [Concomitant]
     Active Substance: CODEINE
  3. AMPICILLIN [Concomitant]
     Active Substance: AMPICILLIN
  4. GENTAMICIN. [Concomitant]
     Active Substance: GENTAMICIN
  5. MOTRIN [Concomitant]
     Active Substance: IBUPROFEN
  6. KINERET [Suspect]
     Active Substance: ANAKINRA
     Indication: DEFICIENCY OF THE INTERLEUKIN-1 RECEPTOR ANTAGONIST
     Route: 058
  7. DEXTROPROPOXYPHENE [Concomitant]
     Active Substance: PROPOXYPHENE HYDROCHLORIDE
  8. INTERFERON GAMMA NOS [Concomitant]
     Active Substance: INTERFERON GAMMA

REACTIONS (1)
  - Aortic dilatation [Unknown]

NARRATIVE: CASE EVENT DATE: 20110701
